FAERS Safety Report 19770343 (Version 1)
Quarter: 2021Q3

REPORT INFORMATION
  Report Type: Spontaneous
  Country: US (occurrence: US)
  Receive Date: 20210831
  Receipt Date: 20210831
  Transmission Date: 20211014
  Serious: No
  Sender: FDA-Public Use
  Company Number: None

PATIENT
  Age: 44 Year
  Sex: Male
  Weight: 104 kg

DRUGS (1)
  1. TOCILIZUMAB (TOCILIZUMAB 20MG/ML INJ,SOLN,20ML) [Suspect]
     Active Substance: TOCILIZUMAB
     Indication: COVID-19
     Route: 042
     Dates: start: 20210807, end: 20210807

REACTIONS (5)
  - SARS-CoV-2 test positive [None]
  - Death [None]
  - Enterococcus test positive [None]
  - Pseudomonas test positive [None]
  - Bacterial infection [None]

NARRATIVE: CASE EVENT DATE: 20210830
